FAERS Safety Report 8905230 (Version 2)
Quarter: 2012Q4

REPORT INFORMATION
  Report Type: 
  Country: CA (occurrence: CA)
  Receive Date: 20121112
  Receipt Date: 20121220
  Transmission Date: 20130627
  Serious: Yes (Other)
  Sender: FDA-Public Use
  Company Number: PHHY2012CA103440

PATIENT
  Sex: Female

DRUGS (5)
  1. EXJADE [Suspect]
     Indication: MYELOFIBROSIS
     Dosage: 1000 mg/ day
     Route: 048
     Dates: start: 201201
  2. EXJADE [Suspect]
     Dosage: 1000 mg/ day
     Route: 048
  3. ANTIHYPERTENSIVES [Concomitant]
     Dosage: UNK UKN, UNK
  4. PREDNISONE [Concomitant]
     Dosage: UNK UKN, UNK
  5. HYDREA [Concomitant]
     Dosage: UNK UKN, UNK

REACTIONS (4)
  - Splenomegaly [Unknown]
  - Anal haemorrhage [Recovered/Resolved]
  - Hepatomegaly [Unknown]
  - Blood iron increased [Unknown]
